FAERS Safety Report 4996620-6 (Version None)
Quarter: 2006Q2

REPORT INFORMATION
  Report Type: 
  Country: None (occurrence: None)
  Receive Date: 20060509
  Receipt Date: 20060427
  Transmission Date: 20061013
  Serious: Yes (Death, Life-Threatening)
  Sender: FDA-Public Use
  Company Number: FR-BRISTOL-MYERS SQUIBB COMPANY-13365531

PATIENT
  Age: 40 Year
  Sex: Female
  Weight: 95 kg

DRUGS (7)
  1. ENDOXAN [Suspect]
     Indication: B-CELL LYMPHOMA
     Route: 042
     Dates: start: 20060114, end: 20060128
  2. DOXORUBICIN [Suspect]
     Indication: B-CELL LYMPHOMA
     Route: 042
     Dates: start: 20060115, end: 20060129
  3. BLEOMYCINE ROGER BELLON [Suspect]
     Indication: B-CELL LYMPHOMA
     Route: 042
     Dates: start: 20060113, end: 20060131
  4. ELDISINE [Suspect]
     Indication: B-CELL LYMPHOMA
     Route: 042
     Dates: start: 20060113, end: 20060131
  5. MABTHERA [Suspect]
     Indication: B-CELL LYMPHOMA
     Route: 042
     Dates: start: 20060114, end: 20060128
  6. SOLU-MEDROL [Concomitant]
  7. METHOTREXATE [Concomitant]
     Route: 037

REACTIONS (12)
  - ACUTE RESPIRATORY DISTRESS SYNDROME [None]
  - ANURIA [None]
  - BONE MARROW FAILURE [None]
  - CARDIAC ARREST [None]
  - COAGULOPATHY [None]
  - DEEP VEIN THROMBOSIS [None]
  - GASTROENTERITIS [None]
  - HYPOVOLAEMIA [None]
  - OLIGURIA [None]
  - RENAL FAILURE [None]
  - SEPTIC SHOCK [None]
  - THROMBOCYTOPENIA [None]
